FAERS Safety Report 15865230 (Version 1)
Quarter: 2019Q1

REPORT INFORMATION
  Report Type: Other
  Country: CN (occurrence: CN)
  Receive Date: 20190124
  Receipt Date: 20190124
  Transmission Date: 20190417
  Serious: Yes (Other)
  Sender: FDA-Public Use
  Company Number: CN-JIANGSU HENGRUI MEDICINE CO., LTD.-2061740

PATIENT
  Age: 64 Year
  Sex: Male
  Weight: 58 kg

DRUGS (1)
  1. OXALIPLATIN INJECTION USP, 5 MG/ML, PACKAGED IN 50 MG/10 ML AND 100 MG [Suspect]
     Active Substance: OXALIPLATIN
     Route: 041
     Dates: start: 20171121, end: 20171121

REACTIONS (4)
  - Pyrexia [Recovered/Resolved]
  - Neutrophil percentage increased [None]
  - Neutrophilia [Recovered/Resolved]
  - Hyperpyrexia [None]

NARRATIVE: CASE EVENT DATE: 20171122
